FAERS Safety Report 10237067 (Version 1)
Quarter: 2014Q2

REPORT INFORMATION
  Report Type: Spontaneous
  Country: FR (occurrence: FR)
  Receive Date: 20140613
  Receipt Date: 20140613
  Transmission Date: 20141212
  Serious: Yes (Other)
  Sender: FDA-Public Use
  Company Number: FR-ROCHE-1414824

PATIENT
  Age: 70 Year
  Sex: Female
  Weight: 67 kg

DRUGS (4)
  1. ROACTEMRA [Suspect]
     Indication: RHEUMATOID ARTHRITIS
     Route: 041
     Dates: start: 201104
  2. LOVENOX [Suspect]
     Indication: ATRIAL FIBRILLATION
     Route: 058
     Dates: start: 20140306, end: 20140331
  3. SPECIAFOLDINE [Concomitant]
     Route: 065
  4. METOJECT [Concomitant]
     Route: 065

REACTIONS (2)
  - Hepatitis [Recovered/Resolved]
  - Cholestatic liver injury [Recovered/Resolved]
